FAERS Safety Report 8883827 (Version 1)
Quarter: 2012Q4

REPORT INFORMATION
  Report Type: 
  Country: GB (occurrence: GB)
  Receive Date: 20121102
  Receipt Date: 20121102
  Transmission Date: 20130627
  Serious: Yes (Death, Hospitalization)
  Sender: FDA-Public Use
  Company Number: GB-WATSON-2012-18405

PATIENT
  Age: 38 Year
  Sex: Female

DRUGS (25)
  1. SIMVASTATIN (UNKNOWN) [Suspect]
     Indication: PRODUCT USED FOR UNKNOWN INDICATION
     Dosage: 40 mg, unknown
     Route: 065
  2. CLOZAPINE [Suspect]
     Indication: SCHIZOPHRENIA
     Dosage: 800 mg, daily
     Route: 048
     Dates: start: 20081209
  3. SERTRALINE [Concomitant]
     Indication: PRODUCT USED FOR UNKNOWN INDICATION
     Dosage: 100 mg, daily
     Route: 065
  4. TAZOCIN [Concomitant]
     Indication: PRODUCT USED FOR UNKNOWN INDICATION
     Route: 065
  5. DEPO-PROVERA [Concomitant]
     Indication: PRODUCT USED FOR UNKNOWN INDICATION
     Route: 065
  6. LEVOTHYROXINE [Concomitant]
     Indication: PRODUCT USED FOR UNKNOWN INDICATION
     Dosage: 25 mcg, unknown, in the morning
     Route: 065
  7. LANTUS [Concomitant]
     Indication: PRODUCT USED FOR UNKNOWN INDICATION
     Route: 065
  8. PARACETAMOL [Concomitant]
     Indication: PRODUCT USED FOR UNKNOWN INDICATION
     Route: 065
  9. APIDRA [Concomitant]
     Indication: PRODUCT USED FOR UNKNOWN INDICATION
     Route: 065
  10. OMEPRAZOLE [Concomitant]
     Indication: PRODUCT USED FOR UNKNOWN INDICATION
     Dosage: 200 mg, daily
     Route: 065
  11. METFORMIN [Concomitant]
     Indication: PRODUCT USED FOR UNKNOWN INDICATION
     Dosage: 500 mg, tid
     Route: 065
  12. DIAZEPAM [Concomitant]
     Indication: PRODUCT USED FOR UNKNOWN INDICATION
     Dosage: 5 mg, bid
     Route: 065
  13. DIHYDROCODEINE [Concomitant]
     Indication: PRODUCT USED FOR UNKNOWN INDICATION
     Dosage: 30mg every 4-6 hours
     Route: 065
  14. DIHYDROCODEINE [Concomitant]
     Dosage: 30mg every 4-6 hours
     Route: 065
  15. DIHYDROCODEINE [Concomitant]
     Dosage: 30mg every 4-6 hours
     Route: 065
  16. DIHYDROCODEINE [Concomitant]
     Dosage: 30mg every 4-6 hours
     Route: 065
  17. LYMECYCLINE [Concomitant]
     Indication: PRODUCT USED FOR UNKNOWN INDICATION
     Dosage: 408 mg, daily
     Route: 065
  18. LYMECYCLINE [Concomitant]
     Dosage: 408 mg, unknown
     Route: 065
  19. LYMECYCLINE [Concomitant]
     Dosage: 408 mg, unknown
     Route: 065
  20. LYMECYCLINE [Concomitant]
     Dosage: 408 mg, unknown
     Route: 065
  21. CHLORPHENAMINE [Concomitant]
     Indication: PRODUCT USED FOR UNKNOWN INDICATION
     Dosage: 4 mg, every 4-6 hours
     Route: 065
  22. CHLORPHENAMINE [Concomitant]
     Dosage: 4mg every 4-6 hours
     Route: 065
  23. CHLORPHENAMINE [Concomitant]
     Dosage: 4mg every 4-6 hours
     Route: 065
  24. CHLORPHENAMINE [Concomitant]
     Dosage: 4mg every 4-6 hours
     Route: 065
  25. FUROSEMIDE [Concomitant]
     Indication: PRODUCT USED FOR UNKNOWN INDICATION
     Dosage: 20 mg, in the morning
     Route: 065
     Dates: start: 20120730

REACTIONS (17)
  - Lymphoma [Unknown]
  - Electrocardiogram QT prolonged [Recovered/Resolved]
  - Endocarditis [Unknown]
  - Condition aggravated [Not Recovered/Not Resolved]
  - Malaise [Not Recovered/Not Resolved]
  - Mass [Not Recovered/Not Resolved]
  - Death [Fatal]
  - Furuncle [Unknown]
  - Neutrophil count increased [Unknown]
  - White blood cell count increased [Unknown]
  - Emotional distress [Not Recovered/Not Resolved]
  - Joint swelling [Not Recovered/Not Resolved]
  - Arthralgia [Not Recovered/Not Resolved]
  - Dyspnoea [Not Recovered/Not Resolved]
  - Inflammatory marker increased [Unknown]
  - Platelet count increased [Unknown]
  - Infection [Unknown]
